FAERS Safety Report 9432547 (Version 5)
Quarter: 2014Q2

REPORT INFORMATION
  Report Type: Report from Study
  Country: US (occurrence: US)
  Receive Date: 20130731
  Receipt Date: 20140630
  Transmission Date: 20141212
  Serious: Yes (Hospitalization, Other)
  Sender: FDA-Public Use
  Company Number: US-SANOFI-AVENTIS-2013SA076293

PATIENT
  Age: 47 Year
  Sex: Female

DRUGS (1)
  1. AUBAGIO [Suspect]
     Indication: MULTIPLE SCLEROSIS
     Route: 048
     Dates: start: 20130320

REACTIONS (9)
  - Visual field defect [Unknown]
  - Eye pain [Unknown]
  - Convulsion [Unknown]
  - Fatigue [Unknown]
  - Nephrolithiasis [Recovered/Resolved]
  - Trigeminal neuralgia [Not Recovered/Not Resolved]
  - Facial pain [Not Recovered/Not Resolved]
  - Nasopharyngitis [Not Recovered/Not Resolved]
  - Paraesthesia [Unknown]
